FAERS Safety Report 21320507 (Version 1)
Quarter: 2022Q3

REPORT INFORMATION
  Report Type: Spontaneous
  Country: DE (occurrence: DE)
  Receive Date: 20220911
  Receipt Date: 20220911
  Transmission Date: 20221027
  Serious: Yes (Hospitalization)
  Sender: FDA-Public Use
  Company Number: DE-BIOGEN-2022BI01153350

PATIENT
  Sex: Male

DRUGS (1)
  1. DALFAMPRIDINE [Suspect]
     Active Substance: DALFAMPRIDINE
     Indication: Multiple sclerosis
     Route: 050
     Dates: start: 2020, end: 202209

REACTIONS (4)
  - Fall [Recovered/Resolved]
  - Skin laceration [Unknown]
  - Head injury [Recovered/Resolved]
  - Bladder disorder [Recovered/Resolved]

NARRATIVE: CASE EVENT DATE: 20220701
